FAERS Safety Report 20953886 (Version 1)
Quarter: 2022Q2

REPORT INFORMATION
  Report Type: Spontaneous
  Country: US (occurrence: US)
  Receive Date: 20220614
  Receipt Date: 20220614
  Transmission Date: 20220720
  Serious: No
  Sender: FDA-Public Use
  Company Number: US-TEVA-2022-US-2040780

PATIENT
  Age: 71 Year
  Sex: Female

DRUGS (2)
  1. DICLOFENAC SODIUM [Suspect]
     Active Substance: DICLOFENAC SODIUM
     Dosage: 150 MILLIGRAM DAILY; DELAYED RELEASE
     Route: 065
  2. SULINDAC [Suspect]
     Active Substance: SULINDAC
     Dosage: QUANTITY:60 DS 30
     Route: 065

REACTIONS (1)
  - Drug effect less than expected [Unknown]
